FAERS Safety Report 4978742-9 (Version None)
Quarter: 2006Q2

REPORT INFORMATION
  Report Type: 
  Country: None (occurrence: None)
  Receive Date: 20060420
  Receipt Date: 20060411
  Transmission Date: 20061013
  Serious: Yes (Hospitalization)
  Sender: FDA-Public Use
  Company Number: GB-MERCK-0604USA02084

PATIENT
  Age: 85 Year
  Sex: Female

DRUGS (5)
  1. PRINIVIL [Suspect]
     Indication: HYPERTENSION
     Route: 048
  2. HYDRODIURIL [Suspect]
     Indication: HYPERTENSION
     Route: 048
  3. CEPHALEXIN [Concomitant]
     Route: 048
  4. ATENOLOL [Concomitant]
     Route: 048
  5. AMLODIPINE [Concomitant]
     Route: 048

REACTIONS (2)
  - BLOOD POTASSIUM ABNORMAL [None]
  - BLOOD UREA ABNORMAL [None]
